FAERS Safety Report 8475874-8 (Version None)
Quarter: 2012Q2

REPORT INFORMATION
  Report Type: 
  Country: None (occurrence: None)
  Receive Date: 20120628
  Receipt Date: 20120625
  Transmission Date: 20120825
  Serious: Yes (Hospitalization, Other)
  Sender: FDA-Public Use
  Company Number: US-PFIZER INC-2012153058

PATIENT
  Sex: Male
  Weight: 68.027 kg

DRUGS (4)
  1. MORPHINE [Concomitant]
     Dosage: 60 MG, 3X/DAY
  2. LYRICA [Suspect]
     Indication: SPINAL COLUMN INJURY
     Dosage: 150 MG, 2X/DAY
     Route: 048
     Dates: start: 20090201
  3. OXYCODONE [Concomitant]
     Dosage: 30 MG, AS NEEDED
  4. LYRICA [Suspect]
     Indication: FIBROMYALGIA

REACTIONS (3)
  - PNEUMONIA [None]
  - WEIGHT DECREASED [None]
  - BLOOD TESTOSTERONE DECREASED [None]
